FAERS Safety Report 9247767 (Version 2)
Quarter: 2013Q3

REPORT INFORMATION
  Report Type: Spontaneous
  Country: PL (occurrence: PL)
  Receive Date: 20130423
  Receipt Date: 20130918
  Transmission Date: 20140515
  Serious: Yes (Life-Threatening, Hospitalization)
  Sender: FDA-Public Use
  Company Number: PL-PFIZER INC-2013121676

PATIENT
  Sex: Male
  Weight: 87 kg

DRUGS (3)
  1. CARBOPLATIN [Suspect]
     Indication: LUNG NEOPLASM MALIGNANT
     Dosage: 424.55 MG, UNK
     Route: 042
     Dates: start: 20130208, end: 20130208
  2. VINORELBINE [Suspect]
     Indication: LUNG NEOPLASM MALIGNANT
     Dosage: 60 MG, 1X/DAY
     Route: 042
     Dates: start: 20130208, end: 20130208
  3. VINORELBINE [Suspect]
     Dosage: UNK
     Dates: start: 20130215, end: 20130215

REACTIONS (1)
  - Febrile neutropenia [Recovering/Resolving]
